FAERS Safety Report 7999689-X (Version None)
Quarter: 2011Q4

REPORT INFORMATION
  Report Type: 
  Country: None (occurrence: None)
  Receive Date: 20111221
  Receipt Date: 20111213
  Transmission Date: 20120403
  Serious: Yes (Disabling)
  Sender: FDA-Public Use
  Company Number: SE-ASTRAZENECA-2011SE75421

PATIENT
  Sex: Male

DRUGS (3)
  1. ATACAND HCT [Suspect]
     Dosage: 32/12.5 MG
     Route: 048
  2. SIMVASTATIN [Suspect]
     Route: 065
  3. ASPIRIN [Suspect]
     Route: 065

REACTIONS (2)
  - RETINAL ARTERY THROMBOSIS [None]
  - BLINDNESS UNILATERAL [None]
